FAERS Safety Report 15616832 (Version 1)
Quarter: 2018Q4

REPORT INFORMATION
  Report Type: Spontaneous
  Country: CA (occurrence: CA)
  Receive Date: 20181114
  Receipt Date: 20181114
  Transmission Date: 20190205
  Serious: Yes (Other)
  Sender: FDA-Public Use
  Company Number: CA-CELLTRION INC.-2017CA015367

PATIENT

DRUGS (10)
  1. INFLECTRA [Suspect]
     Active Substance: INFLIXIMAB-DYYB
     Dosage: 600 MG, CYCLIC (EVERY 0,2,6 WEEKS, THEN EVERY 8 WEEKS)
     Route: 042
     Dates: start: 20171024, end: 20171024
  2. METHOTREXATE SODIUM LEDERLE [Concomitant]
     Active Substance: METHOTREXATE SODIUM
     Dosage: 20 MG, 1/WEEK
     Dates: start: 201601
  3. INFLECTRA [Suspect]
     Active Substance: INFLIXIMAB-DYYB
     Dosage: 600 MG, CYCLIC (EVERY 0, 2, 6 WEEKS, THEN EVERY8 WEEKS)
     Route: 042
     Dates: start: 20180307, end: 20180307
  4. INFLECTRA [Suspect]
     Active Substance: INFLIXIMAB-DYYB
     Dosage: 600 MG, CYCLIC (EVERY 0, 2, 6 WEEKS, THEN EVERY8 WEEKS)
     Route: 042
     Dates: start: 20180511, end: 20180511
  5. INFLECTRA [Suspect]
     Active Substance: INFLIXIMAB-DYYB
     Dosage: 600 MG, CYCLIC (600 MG/Q (EVERY) 0, 2, 6 WEEKS, THEN EVERY 8 WEEKS);
     Route: 042
     Dates: start: 20180711, end: 20180711
  6. INFLECTRA [Suspect]
     Active Substance: INFLIXIMAB-DYYB
     Dosage: 600 MG (EVERY 0, 2, 6 WEEKS, THEN EVERY 8 WEEKS)
     Dates: start: 20180906
  7. INFLECTRA [Suspect]
     Active Substance: INFLIXIMAB-DYYB
     Indication: PSORIATIC ARTHROPATHY
     Dosage: 600 MG, CYCLIC (EVERY 0, 2, 6 WEEKS, THEN EVERY8 WEEKS)
     Route: 042
     Dates: start: 20170510, end: 20170510
  8. INFLECTRA [Suspect]
     Active Substance: INFLIXIMAB-DYYB
     Dosage: 600 MG, CYCLIC
     Route: 042
     Dates: start: 20180109, end: 20180109
  9. INFLECTRA [Suspect]
     Active Substance: INFLIXIMAB-DYYB
     Dosage: 600 MG, CYCLIC
     Route: 042
     Dates: start: 20180109, end: 20180109
  10. METFORMIN [Concomitant]
     Active Substance: METFORMIN HYDROCHLORIDE
     Dosage: 500 MG, BID

REACTIONS (6)
  - Product use issue [Unknown]
  - Influenza like illness [Not Recovered/Not Resolved]
  - Lower respiratory tract infection [Not Recovered/Not Resolved]
  - Epistaxis [Unknown]
  - Sinus congestion [Not Recovered/Not Resolved]
  - Blood pressure fluctuation [Unknown]

NARRATIVE: CASE EVENT DATE: 201708
